FAERS Safety Report 8411777 (Version 4)
Quarter: 2013Q2

REPORT INFORMATION
  Report Type: Spontaneous
  Country: US (occurrence: US)
  Receive Date: 20120217
  Receipt Date: 20130514
  Transmission Date: 20140414
  Serious: Yes (Hospitalization, Disabling, Other)
  Sender: FDA-Public Use
  Company Number: US-009507513-1202USA02457

PATIENT
  Sex: Female

DRUGS (4)
  1. FOSAMAX [Suspect]
     Indication: OSTEOPOROSIS
     Dosage: 70 MG, UNK
     Route: 048
     Dates: start: 20020512, end: 20080213
  2. FOSAMAX [Suspect]
     Indication: OSTEOPOROSIS
     Dosage: 70 MG, UNK
     Route: 048
     Dates: start: 20080114, end: 201004
  3. PROTONIX [Concomitant]
     Dosage: UNK
     Dates: start: 20010205, end: 20100102
  4. PANTOPRAZOLE [Concomitant]
     Dosage: UNK
     Dates: start: 20010205, end: 20100102

REACTIONS (12)
  - Femur fracture [Not Recovered/Not Resolved]
  - Open reduction of fracture [Unknown]
  - Femur fracture [Not Recovered/Not Resolved]
  - Open reduction of fracture [Unknown]
  - Low turnover osteopathy [Not Recovered/Not Resolved]
  - Fall [Unknown]
  - Fall [Unknown]
  - Tonsillectomy [Unknown]
  - Adenoidectomy [Unknown]
  - Cholecystectomy [Unknown]
  - Osteoarthritis [Unknown]
  - Hysterectomy [Unknown]
